FAERS Safety Report 15503465 (Version 2)
Quarter: 2018Q4

REPORT INFORMATION
  Report Type: Report from Study
  Country: None (occurrence: US)
  Receive Date: 20181016
  Receipt Date: 20181105
  Transmission Date: 20190205
  Serious: Yes (Life-Threatening, Hospitalization, Other)
  Sender: FDA-Public Use
  Company Number: US-ABBVIE-18K-163-2516729-00

PATIENT
  Age: 68 Year
  Sex: Male
  Weight: 86.2 kg

DRUGS (3)
  1. VYXEOS [Concomitant]
     Active Substance: CYTARABINE\DAUNORUBICIN
     Indication: ACUTE MYELOMONOCYTIC LEUKAEMIA
  2. VENCLEXTA [Suspect]
     Active Substance: VENETOCLAX
     Indication: CHRONIC LYMPHOCYTIC LEUKAEMIA
     Route: 048
     Dates: start: 20180731, end: 20180806
  3. VENCLEXTA [Suspect]
     Active Substance: VENETOCLAX
     Indication: ACUTE MYELOID LEUKAEMIA
     Route: 048
     Dates: start: 20180807, end: 201809

REACTIONS (7)
  - Off label use [Recovered/Resolved]
  - Platelet count decreased [Recovered/Resolved]
  - Localised infection [Not Recovered/Not Resolved]
  - Skin laceration [Not Recovered/Not Resolved]
  - Fusarium infection [Recovering/Resolving]
  - Pneumonia [Recovering/Resolving]
  - Neutropenia [Recovered/Resolved]

NARRATIVE: CASE EVENT DATE: 20180731
